FAERS Safety Report 4916553-0 (Version None)
Quarter: 2006Q1

REPORT INFORMATION
  Report Type: 
  Country: None (occurrence: None)
  Receive Date: 20060216
  Receipt Date: 20060216
  Transmission Date: 20060701
  Serious: Yes (Death)
  Sender: FDA-Public Use
  Company Number: None

PATIENT
  Age: 18 Year
  Sex: Male
  Weight: 149.687 kg

DRUGS (1)
  1. RITALIN [Suspect]

REACTIONS (2)
  - MYOCARDIAL INFARCTION [None]
  - MYOCARDITIS [None]
